FAERS Safety Report 4916504-9 (Version None)
Quarter: 2006Q1

REPORT INFORMATION
  Report Type: 
  Country: None (occurrence: None)
  Receive Date: 20060220
  Receipt Date: 20060124
  Transmission Date: 20060701
  Serious: Yes (Hospitalization)
  Sender: FDA-Public Use
  Company Number: PHEH2006US01334

PATIENT
  Age: 42 Year
  Sex: Female
  Weight: 96.145 kg

DRUGS (5)
  1. LOTREL [Suspect]
     Indication: HYPERTENSION
     Dosage: 5/10MG, QD
     Route: 048
     Dates: start: 20010101, end: 20060119
  2. LOTREL [Suspect]
     Dosage: 2.5/10MG, QD
     Route: 048
     Dates: start: 20060120
  3. ELAVIL [Concomitant]
     Indication: MIGRAINE
     Dates: start: 20050301
  4. NORTRIPTYLINE HCL [Concomitant]
     Indication: SLEEP DISORDER
     Dosage: 10MG
     Dates: start: 20050501
  5. FIORICET [Concomitant]
     Indication: MIGRAINE
     Dates: start: 20050301

REACTIONS (9)
  - ANXIETY [None]
  - BURNING SENSATION [None]
  - CATHETERISATION CARDIAC [None]
  - CHEST PAIN [None]
  - CORONARY ARTERY OCCLUSION [None]
  - DIZZINESS [None]
  - FATIGUE [None]
  - HYPERHIDROSIS [None]
  - NERVOUSNESS [None]
